FAERS Safety Report 6467215-2 (Version None)
Quarter: 2009Q4

REPORT INFORMATION
  Report Type: 
  Country: None (occurrence: None)
  Receive Date: 20091127
  Receipt Date: 20091111
  Transmission Date: 20100525
  Serious: Yes (Hospitalization, Other)
  Sender: FDA-Public Use
  Company Number: 2009BI037360

PATIENT
  Age: 56 Year
  Sex: Female

DRUGS (14)
  1. ZEVALIN [Suspect]
     Indication: NON-HODGKIN'S LYMPHOMA
     Dosage: 0.4 MCI/KG;1X;IV
     Route: 042
  2. RITUXIMAB [Concomitant]
  3. FLUDARABINE [Concomitant]
  4. MELPHALAN [Concomitant]
  5. SANDIMMUNE [Concomitant]
  6. MAGNESIUM SULFATE [Concomitant]
  7. CYCLOSPORINE [Concomitant]
  8. METHOTREXATE [Concomitant]
  9. COTRIMOXAZOLE [Concomitant]
  10. FOLATE [Concomitant]
  11. SUMIAL [Concomitant]
  12. PROZAC [Concomitant]
  13. VALCYTE [Concomitant]
  14. PREDNISONE [Concomitant]

REACTIONS (3)
  - ACUTE GRAFT VERSUS HOST DISEASE [None]
  - ACUTE GRAFT VERSUS HOST DISEASE IN INTESTINE [None]
  - ACUTE GRAFT VERSUS HOST DISEASE IN SKIN [None]
